FAERS Safety Report 7483298-5 (Version None)
Quarter: 2011Q2

REPORT INFORMATION
  Report Type: 
  Country: None (occurrence: None)
  Receive Date: 20110509
  Receipt Date: 20110421
  Transmission Date: 20111010
  Serious: Yes (Hospitalization, Other)
  Sender: FDA-Public Use
  Company Number: 2009S1004898

PATIENT
  Age: 52 Year
  Sex: Female
  Weight: 70.4436 kg

DRUGS (15)
  1. ACIPHEX [Concomitant]
  2. CELEBREX [Concomitant]
  3. PRAVASTATIN [Concomitant]
  4. BENAZEPRIL HYDROCHLORIDE [Concomitant]
  5. FERROUS SULFATE TAB [Concomitant]
  6. K-DUR [Concomitant]
  7. GLYBURIDE AND METFORMIN HCL [Concomitant]
  8. WELLBUTRIN [Concomitant]
  9. GLUCAGON [Concomitant]
  10. SYNTHROID [Concomitant]
  11. COLACE [Concomitant]
  12. PHOSPHOSODA FLAVOR NOT SPECIFIED [Suspect]
     Indication: COLONOSCOPY
     Dosage: 90 ML;TOTAL;PO
     Route: 048
     Dates: start: 20070723, end: 20070723
  13. INSULIN GLARGINE [Concomitant]
  14. HYDROCHLORIDE [Concomitant]
  15. MULTI-VITAMINS [Concomitant]

REACTIONS (12)
  - FATIGUE [None]
  - SYNCOPE [None]
  - RENAL FAILURE ACUTE [None]
  - HAEMORRHOIDS [None]
  - ANAEMIA [None]
  - MYALGIA [None]
  - MALAISE [None]
  - RENAL FAILURE CHRONIC [None]
  - DYSGEUSIA [None]
  - ABDOMINAL PAIN [None]
  - GAIT DISTURBANCE [None]
  - NEPHROCALCINOSIS [None]
